FAERS Safety Report 6716141-X (Version None)
Quarter: 2010Q2

REPORT INFORMATION
  Report Type: 
  Country: None (occurrence: None)
  Receive Date: 20100506
  Receipt Date: 20100506
  Transmission Date: 20101027
  Serious: Yes (Hospitalization)
  Sender: FDA-Public Use
  Company Number: None

PATIENT
  Age: 27 Month
  Sex: Female
  Weight: 13.2 kg

DRUGS (5)
  1. IRINOTECAN [Suspect]
     Indication: NEUROBLASTOMA
     Dosage: 40MG/M2 DAY 1-5; IV
     Route: 042
     Dates: start: 20100329, end: 20100402
  2. IRINOTECAN [Suspect]
     Indication: NEUROBLASTOMA
     Dosage: 40MG/M2 DAY 1-5; IV
     Route: 042
     Dates: start: 20100419, end: 20100423
  3. VELCADE [Suspect]
     Indication: NEUROBLASTOMA
     Dosage: 1.2MG/M2 DAY1,4,6,11: IV
     Route: 042
     Dates: start: 20100329, end: 20100408
  4. VELCADE [Suspect]
     Indication: NEUROBLASTOMA
     Dosage: 1.2MG/M2 DAY1,4,6,11: IV
     Route: 042
     Dates: start: 20100419, end: 20100429
  5. PENTAMIDINE ISETHIONATE [Concomitant]

REACTIONS (8)
  - COUGH [None]
  - HYPOPHAGIA [None]
  - LEUKOCYTOSIS [None]
  - PYREXIA [None]
  - RASH ERYTHEMATOUS [None]
  - RHINORRHOEA [None]
  - SKIN WARM [None]
  - VOMITING [None]
